FAERS Safety Report 7293108-7 (Version None)
Quarter: 2011Q1

REPORT INFORMATION
  Report Type: 
  Country: None (occurrence: None)
  Receive Date: 20110215
  Receipt Date: 20110207
  Transmission Date: 20110831
  Serious: Yes (Hospitalization)
  Sender: FDA-Public Use
  Company Number: US-ROCHE-758073

PATIENT
  Sex: Male
  Weight: 61.2 kg

DRUGS (9)
  1. SUSTIVA [Concomitant]
  2. VIREAD [Concomitant]
  3. REYATAZ [Concomitant]
  4. POTASSIUM CITRATE [Concomitant]
  5. HYDROCHLOROTHIAZIDE [Concomitant]
  6. FUZEON [Suspect]
     Route: 058
     Dates: start: 20040101
  7. NORVIR [Concomitant]
  8. LIPITOR [Concomitant]
  9. KLOR-CON [Concomitant]

REACTIONS (5)
  - NEPHROLITHIASIS [None]
  - PNEUMONIA [None]
  - BACTERAEMIA [None]
  - INJECTION SITE RASH [None]
  - URINARY TRACT INFECTION [None]
